FAERS Safety Report 5639784-3 (Version None)
Quarter: 2008Q1

REPORT INFORMATION
  Report Type: 
  Country: None (occurrence: None)
  Receive Date: 20080227
  Receipt Date: 20080225
  Transmission Date: 20080703
  Serious: Yes (Hospitalization)
  Sender: FDA-Public Use
  Company Number: IE-BRISTOL-MYERS SQUIBB COMPANY-14051072

PATIENT
  Age: 61 Year
  Sex: Female

DRUGS (2)
  1. PACLITAXEL [Suspect]
     Indication: BREAST CANCER
     Route: 042
     Dates: start: 20071126
  2. TRASTUZUMAB [Suspect]
     Indication: BREAST CANCER
     Dosage: ROUTE OF ADMINISTRATION-INTRAJOINT
     Route: 042
     Dates: start: 20071126

REACTIONS (17)
  - ACUTE RESPIRATORY DISTRESS SYNDROME [None]
  - BLOOD MAGNESIUM DECREASED [None]
  - BLOOD POTASSIUM DECREASED [None]
  - BLOOD PRESSURE DIASTOLIC DECREASED [None]
  - DIARRHOEA [None]
  - EJECTION FRACTION DECREASED [None]
  - FLUID OVERLOAD [None]
  - HAEMOGLOBIN DECREASED [None]
  - LUNG CONSOLIDATION [None]
  - NOSOCOMIAL INFECTION [None]
  - PLEURAL EFFUSION [None]
  - PNEUMOTHORAX [None]
  - PULMONARY OEDEMA [None]
  - RESPIRATORY FAILURE [None]
  - RHINORRHOEA [None]
  - SINUS DISORDER [None]
  - SUBCUTANEOUS EMPHYSEMA [None]
